FAERS Safety Report 9474221 (Version 1)
Quarter: 2013Q3

REPORT INFORMATION
  Report Type: Spontaneous
  Country: IT (occurrence: IT)
  Receive Date: 20130823
  Receipt Date: 20130823
  Transmission Date: 20140515
  Serious: Yes (Other)
  Sender: FDA-Public Use
  Company Number: IT-ROXANE LABORATORIES, INC.-2013-RO-01395RO

PATIENT
  Age: 41 Year
  Sex: Female

DRUGS (5)
  1. AZATHIOPRINE [Suspect]
     Indication: PEMPHIGUS
     Dates: start: 200703, end: 201003
  2. PREDNISONE [Suspect]
     Indication: PEMPHIGUS
     Route: 048
  3. PREDNISONE [Suspect]
     Route: 048
  4. PREDNISONE [Suspect]
     Route: 048
  5. METHOTREXATE [Suspect]
     Indication: PEMPHIGUS
     Dates: start: 201104, end: 201104

REACTIONS (4)
  - Behcet^s syndrome [Recovered/Resolved]
  - Optic neuritis [Unknown]
  - Pemphigus [Recovered/Resolved]
  - Gastrointestinal disorder [Unknown]
